FAERS Safety Report 21364193 (Version 2)
Quarter: 2022Q4

REPORT INFORMATION
  Report Type: Spontaneous
  Country: AU (occurrence: AU)
  Receive Date: 20220922
  Receipt Date: 20221011
  Transmission Date: 20230113
  Serious: Yes (Other)
  Sender: FDA-Public Use
  Company Number: AU-CELLTRION INC.-2022AU015360

PATIENT

DRUGS (1)
  1. INFLIXIMAB [Suspect]
     Active Substance: INFLIXIMAB
     Indication: Colitis ulcerative
     Dosage: 3RD REMSIMA DOSE 10 DAYS AGO; FORM: INJECTION
     Route: 058
     Dates: start: 202206

REACTIONS (2)
  - Ascites [Recovering/Resolving]
  - Condition aggravated [Recovering/Resolving]
